FAERS Safety Report 4609958-9 (Version None)
Quarter: 2005Q1

REPORT INFORMATION
  Report Type: 
  Country: None (occurrence: None)
  Receive Date: 20050316
  Receipt Date: 20050216
  Transmission Date: 20050727
  Serious: Yes (Hospitalization, Disabling, Other)
  Sender: FDA-Public Use
  Company Number: US-MERCK-0502USA02202

PATIENT
  Age: 45 Year
  Sex: Female

DRUGS (2)
  1. VYTORIN [Suspect]
     Indication: DYSLIPIDAEMIA
     Route: 048
     Dates: start: 20050101, end: 20050101
  2. SYNTHROID [Concomitant]
     Route: 065

REACTIONS (16)
  - ANXIETY [None]
  - ASTHENIA [None]
  - CONVERSION DISORDER [None]
  - DEPRESSION [None]
  - DRUG ERUPTION [None]
  - DYSPNOEA [None]
  - GALLBLADDER PAIN [None]
  - HEART RATE INCREASED [None]
  - MUSCULAR WEAKNESS [None]
  - NON-CARDIAC CHEST PAIN [None]
  - PAIN [None]
  - PAIN IN EXTREMITY [None]
  - PALPITATIONS [None]
  - PHARYNGITIS STREPTOCOCCAL [None]
  - SKIN BURNING SENSATION [None]
  - STREPTOCOCCAL INFECTION [None]
